FAERS Safety Report 9846507 (Version 1)
Quarter: 2013Q4

REPORT INFORMATION
  Report Type: Spontaneous
  Country: US (occurrence: None)
  Receive Date: 20131219
  Receipt Date: 20131219
  Transmission Date: 20140711
  Serious: Yes (Death)
  Sender: FDA-Public Use
  Company Number: 163-20785-13041118

PATIENT
  Age: 44 Year
  Sex: Female

DRUGS (6)
  1. THALOMID (THALIDOMIDE) (200 MILLIGRAM, CAPSULES) [Suspect]
     Indication: PLASMA CELL MYELOMA
     Route: 048
     Dates: start: 20110520
  2. ACYCLOVIR(ACICLOVIR)(CAPSULES) [Concomitant]
  3. EC ASPIRIN(ACETYLSALICYLIC ACID)(TABLETS) [Concomitant]
  4. DEXAMETHASONE(DEXAMETHASONE) (UNKNOWN) [Concomitant]
  5. VELCADE(BORTEZOMIB)(UNKNOWN) [Concomitant]
  6. ZOMETA(ZOLEDRONIC ACID)(UNKNOWN) [Concomitant]

REACTIONS (1)
  - Death [None]
